FAERS Safety Report 18000819 (Version 1)
Quarter: 2020Q3

REPORT INFORMATION
  Report Type: Spontaneous
  Country: CA (occurrence: CA)
  Receive Date: 20200709
  Receipt Date: 20200709
  Transmission Date: 20201103
  Serious: Yes (Hospitalization, Other)
  Sender: FDA-Public Use
  Company Number: CA-TEVA-2020-CA-1798083

PATIENT
  Age: 68 Year
  Sex: Female

DRUGS (18)
  1. TEVA?FUROSEMIDE [Suspect]
     Active Substance: FUROSEMIDE
     Route: 048
  2. HYOSCINE [Concomitant]
     Active Substance: SCOPOLAMINE
  3. GABAPENTIN. [Concomitant]
     Active Substance: GABAPENTIN
  4. AMLODIPINE [Suspect]
     Active Substance: AMLODIPINE BESYLATE
     Route: 048
  5. CLONIDINE. [Concomitant]
     Active Substance: CLONIDINE
  6. FLUTICASONE. [Concomitant]
     Active Substance: FLUTICASONE
  7. PANTOPRAZOLE [Concomitant]
     Active Substance: PANTOPRAZOLE
  8. VENTOLIN [Concomitant]
     Active Substance: ALBUTEROL SULFATE
  9. MORPHINE [Concomitant]
     Active Substance: MORPHINE
  10. PROPRANOLOL [Concomitant]
     Active Substance: PROPRANOLOL HYDROCHLORIDE
  11. ANETHOLTRITHION [Concomitant]
     Active Substance: ANETHOLTRITHION
  12. HYDROMORPHONE [Concomitant]
     Active Substance: HYDROMORPHONE
  13. LEVOTHYROXINE. [Concomitant]
     Active Substance: LEVOTHYROXINE
  14. TYLENOL [Concomitant]
     Active Substance: ACETAMINOPHEN
  15. AMLODIPINE [Concomitant]
     Active Substance: AMLODIPINE BESYLATE
  16. MYRBETRIQ [Concomitant]
     Active Substance: MIRABEGRON
  17. CYCLOBENZAPRINE. [Concomitant]
     Active Substance: CYCLOBENZAPRINE
  18. SITAGLIPTINA [SITAGLIPTIN] [Concomitant]

REACTIONS (1)
  - Acute kidney injury [Recovering/Resolving]
